FAERS Safety Report 9763496 (Version 1)
Quarter: 2013Q4

REPORT INFORMATION
  Report Type: Spontaneous
  Country: US (occurrence: US)
  Receive Date: 20131216
  Receipt Date: 20131216
  Transmission Date: 20140711
  Serious: No
  Sender: FDA-Public Use
  Company Number: US-BIOGENIDEC-2013BI107067

PATIENT
  Age: 51 Year
  Sex: Male
  Weight: 40 kg

DRUGS (8)
  1. TECFIDERA [Suspect]
     Indication: PRODUCT USED FOR UNKNOWN INDICATION
     Route: 048
  2. AMPYRA [Concomitant]
  3. CITALOPRAM [Concomitant]
  4. LEVEMIR [Concomitant]
  5. METHADONE [Concomitant]
  6. NOVOLOG [Concomitant]
  7. VITAMIN D [Concomitant]
  8. XANAX [Concomitant]

REACTIONS (4)
  - Confusional state [Unknown]
  - Depression [Unknown]
  - Diabetes mellitus [Unknown]
  - Pruritus [Unknown]
